FAERS Safety Report 5081401-8 (Version None)
Quarter: 2006Q3

REPORT INFORMATION
  Report Type: 
  Country: None (occurrence: None)
  Receive Date: 20060811
  Receipt Date: 20060802
  Transmission Date: 20061208
  Serious: Yes (Other)
  Sender: FDA-Public Use
  Company Number: 2006-08-0442

PATIENT
  Age: 57 Year
  Sex: Female

DRUGS (6)
  1. PEG-INTRON [Suspect]
     Indication: HEPATITIS C
     Dosage: SUBCUTANEOUS
     Route: 058
     Dates: start: 20060518
  2. LISINOPRIL [Concomitant]
  3. LORAZEPAM [Concomitant]
  4. NIFEDIAC CC (NIFEDIPINE) [Concomitant]
  5. VICODIN [Concomitant]
  6. RIBAVIRIN [Suspect]
     Indication: HEPATITIS C
     Dosage: ORAL
     Route: 048
     Dates: start: 20060518

REACTIONS (5)
  - DEHYDRATION [None]
  - DIARRHOEA [None]
  - INSOMNIA [None]
  - NAUSEA [None]
  - VOMITING [None]
